FAERS Safety Report 13455194 (Version 4)
Quarter: 2017Q2

REPORT INFORMATION
  Report Type: Spontaneous
  Country: IT (occurrence: IT)
  Receive Date: 20170419
  Receipt Date: 20170518
  Transmission Date: 20170830
  Serious: Yes (Other)
  Sender: FDA-Public Use
  Company Number: IT-TEVA-760212ACC

PATIENT
  Age: 60 Year
  Sex: Female

DRUGS (4)
  1. BEVACIZUMAB [Concomitant]
     Active Substance: BEVACIZUMAB
     Indication: PRODUCT USED FOR UNKNOWN INDICATION
     Route: 042
  2. IRINOTECAN [Concomitant]
     Active Substance: IRINOTECAN
     Indication: PRODUCT USED FOR UNKNOWN INDICATION
  3. OXALIPLATIN. [Suspect]
     Active Substance: OXALIPLATIN
     Indication: RECTAL CANCER RECURRENT
     Route: 042
     Dates: start: 20150513, end: 20170330
  4. FLUOROURACIL. [Concomitant]
     Active Substance: FLUOROURACIL
     Indication: PRODUCT USED FOR UNKNOWN INDICATION
     Route: 042

REACTIONS (6)
  - Abdominal pain [Recovered/Resolved]
  - Diarrhoea [Recovered/Resolved]
  - Rectal tenesmus [Recovered/Resolved]
  - Lip oedema [Recovered/Resolved]
  - Erythema [Recovered/Resolved]
  - Aerophagia [Recovered/Resolved]

NARRATIVE: CASE EVENT DATE: 20170330
